FAERS Safety Report 6625522-4 (Version None)
Quarter: 2010Q1

REPORT INFORMATION
  Report Type: 
  Country: None (occurrence: None)
  Receive Date: 20100223
  Receipt Date: 20091029
  Transmission Date: 20100710
  Serious: Yes (Other)
  Sender: FDA-Public Use
  Company Number: 8054011

PATIENT
  Sex: Female
  Weight: 67.5 kg

DRUGS (1)
  1. CERTOLIZUMAB PEGOL (UCB, INC) [Suspect]
     Indication: CROHN'S DISEASE
     Dosage: (400 MG, REPORTED INTERVAL: EVERY 4 WEEKS AFTER 3RD DOSE SUBCUTANEOUS)
     Route: 058
     Dates: start: 20090801

REACTIONS (1)
  - INAPPROPRIATE SCHEDULE OF DRUG ADMINISTRATION [None]
